FAERS Safety Report 7541662-X (Version None)
Quarter: 2011Q2

REPORT INFORMATION
  Report Type: 
  Country: None (occurrence: None)
  Receive Date: 20110613
  Receipt Date: 20110601
  Transmission Date: 20111010
  Serious: Yes (Hospitalization)
  Sender: FDA-Public Use
  Company Number: NZ-JNJFOC-20110602628

PATIENT
  Sex: Male
  Weight: 112 kg

DRUGS (17)
  1. NAPROXEN [Concomitant]
     Indication: OSTEOARTHRITIS
     Route: 048
     Dates: start: 20101213
  2. PIROXICAM [Concomitant]
     Route: 048
     Dates: start: 20040114
  3. GOLIMUMAB [Suspect]
     Route: 058
     Dates: start: 20110407
  4. SEVREDOL [Concomitant]
     Indication: OSTEOARTHRITIS
     Route: 048
     Dates: start: 20101027
  5. CALCIUM CARBONATE [Concomitant]
     Route: 048
     Dates: start: 20020710
  6. SULFASALAZINE [Concomitant]
     Route: 048
     Dates: start: 19970611
  7. INHIBACE [Concomitant]
     Route: 048
     Dates: start: 20061031
  8. GOLIMUMAB [Suspect]
     Indication: RHEUMATOID ARTHRITIS
     Route: 058
     Dates: start: 20060829
  9. MULTIVITE SIX [Concomitant]
     Route: 048
     Dates: start: 20020710
  10. OMEPRAZOLE [Concomitant]
     Route: 048
     Dates: start: 20020710
  11. METFORMIN HCL [Concomitant]
     Route: 048
     Dates: start: 20080328
  12. ACETAMINOPHEN [Concomitant]
     Indication: OSTEOARTHRITIS
     Route: 048
     Dates: start: 20100829
  13. SIMVASTATIN [Concomitant]
     Indication: CARDIAC DISORDER
     Route: 048
     Dates: start: 20090927
  14. DILTIAZEM CD [Concomitant]
     Indication: CARDIAC DISORDER
     Route: 048
     Dates: start: 20090927
  15. FOLIC ACID [Concomitant]
     Route: 048
     Dates: start: 20001228
  16. METHOTREXATE [Concomitant]
     Route: 048
     Dates: start: 20051114
  17. ACETAMINOPHEN W/ CODEINE [Concomitant]
     Indication: OSTEOARTHRITIS
     Route: 048
     Dates: start: 20100829

REACTIONS (1)
  - CELLULITIS [None]
